FAERS Safety Report 25926443 (Version 7)
Quarter: 2025Q4

REPORT INFORMATION
  Report Type: Report from Study
  Country: BR (occurrence: BR)
  Receive Date: 20251015
  Receipt Date: 20251224
  Transmission Date: 20260117
  Serious: Yes (Hospitalization)
  Sender: JOHNSON AND JOHNSON
  Company Number: BR-JNJFOC-20250907359

PATIENT
  Age: 74 Year
  Sex: Female
  Weight: 60 kg

DRUGS (9)
  1. TALVEY [Suspect]
     Active Substance: TALQUETAMAB-TGVS
     Indication: Plasma cell myeloma
     Route: 058
     Dates: start: 20250822
  2. TALVEY [Suspect]
     Active Substance: TALQUETAMAB-TGVS
     Route: 058
     Dates: start: 20250823, end: 20251103
  3. TALVEY [Suspect]
     Active Substance: TALQUETAMAB-TGVS
     Route: 058
     Dates: start: 20250915, end: 20250915
  4. TALVEY [Suspect]
     Active Substance: TALQUETAMAB-TGVS
     Route: 058
  5. TALVEY [Suspect]
     Active Substance: TALQUETAMAB-TGVS
     Dosage: THERAPY START DATE: 17-NOV-2025
     Route: 058
  6. ERYTHROPOIETIN [Suspect]
     Active Substance: ERYTHROPOIETIN
     Indication: Anaemia
  7. ERYTHROPOIETIN [Suspect]
     Active Substance: ERYTHROPOIETIN
     Indication: Immunodeficiency
  8. GRANULOKINE [Suspect]
     Active Substance: FILGRASTIM
     Indication: Anaemia
  9. GRANULOKINE [Suspect]
     Active Substance: FILGRASTIM
     Indication: Immunodeficiency

REACTIONS (29)
  - Pain in extremity [Recovered/Resolved]
  - Bone pain [Recovered/Resolved]
  - Productive cough [Recovered/Resolved]
  - Ligament rupture [Not Recovered/Not Resolved]
  - Immunodeficiency [Recovered/Resolved]
  - Anaemia [Recovered/Resolved]
  - Asthenia [Not Recovered/Not Resolved]
  - Dysgeusia [Not Recovered/Not Resolved]
  - Contusion [Not Recovered/Not Resolved]
  - Eating disorder [Not Recovered/Not Resolved]
  - Appetite disorder [Not Recovered/Not Resolved]
  - Onycholysis [Recovering/Resolving]
  - Limb injury [Recovering/Resolving]
  - Nail discolouration [Not Recovered/Not Resolved]
  - Dry mouth [Not Recovered/Not Resolved]
  - Drooling [Not Recovered/Not Resolved]
  - Skin exfoliation [Recovered/Resolved]
  - Onychomalacia [Recovering/Resolving]
  - Skin discolouration [Not Recovered/Not Resolved]
  - Haematoma [Unknown]
  - Weight decreased [Not Recovered/Not Resolved]
  - Memory impairment [Unknown]
  - Onychalgia [Not Recovered/Not Resolved]
  - Decreased appetite [Not Recovered/Not Resolved]
  - Somnolence [Unknown]
  - Pyrexia [Recovering/Resolving]
  - Alopecia [Not Recovered/Not Resolved]
  - Feeling cold [Recovering/Resolving]
  - Depression [Not Recovered/Not Resolved]

NARRATIVE: CASE EVENT DATE: 20250801
